FAERS Safety Report 7338218-0 (Version None)
Quarter: 2011Q1

REPORT INFORMATION
  Report Type: 
  Country: None (occurrence: None)
  Receive Date: 20110308
  Receipt Date: 20110302
  Transmission Date: 20110831
  Serious: No
  Sender: FDA-Public Use
  Company Number: US-PFIZER INC-2011046322

PATIENT
  Sex: Female

DRUGS (18)
  1. MAGNESIUM OXIDE [Concomitant]
     Indication: FAECES HARD
     Dosage: 1100 MG, 1X/DAY
  2. VITAMIN B-12 [Concomitant]
     Dosage: 2500 UG, UNK
  3. ACIPHEX [Concomitant]
     Dosage: 20 MG, 2X/DAY
  4. LANTUS [Concomitant]
     Indication: DIABETES MELLITUS
     Dosage: UNK
  5. FEXOFENADINE [Concomitant]
     Dosage: 180 MG, 1X/DAY
  6. LAMICTAL [Concomitant]
     Dosage: UNK
  7. SIMVASTATIN [Concomitant]
     Indication: PROPHYLAXIS
     Dosage: UNK
  8. ACETYLSALICYLIC ACID [Concomitant]
     Dosage: 162 MG, 1X/DAY
     Route: 048
  9. RAMIPRIL [Concomitant]
     Dosage: 10 MG, 1X/DAY
  10. LYSINE [Concomitant]
     Dosage: 500 MG, 1X/DAY
  11. ALTACE [Concomitant]
     Indication: PROPHYLAXIS
     Dosage: UNK
  12. PREMARIN [Suspect]
     Indication: MENOPAUSAL SYMPTOMS
     Dosage: UNK
     Route: 067
     Dates: start: 20100101
  13. PRAZOSIN HYDROCHLORIDE [Concomitant]
     Dosage: 2 MG, 2X/DAY
  14. MULTI-VITAMINS [Concomitant]
     Dosage: UNK
  15. IRON [Concomitant]
     Dosage: UNK
  16. CYMBALTA [Concomitant]
     Dosage: UNK
  17. ASCORBIC ACID [Concomitant]
     Dosage: 1000 MG, 1X/DAY
  18. AMARYL [Concomitant]
     Dosage: 2 MG, 1X/DAY

REACTIONS (4)
  - DISTURBANCE IN ATTENTION [None]
  - CIRCUMSTANCE OR INFORMATION CAPABLE OF LEADING TO MEDICATION ERROR [None]
  - ANXIETY [None]
  - DEPRESSED MOOD [None]
